FAERS Safety Report 4519495-8 (Version None)
Quarter: 2004Q4

REPORT INFORMATION
  Report Type: 
  Country: None (occurrence: None)
  Receive Date: 20041101
  Receipt Date: 20031126
  Transmission Date: 20050328
  Serious: Yes (Other)
  Sender: FDA-Public Use
  Company Number: HQWYE456908DEC03

PATIENT
  Age: 58 Year
  Sex: Female
  Weight: 82.17 kg

DRUGS (7)
  1. PREMARIN [Suspect]
     Dosage: 0.625 MG DAILY; 0.625 MG DAILY, ORAL
     Route: 048
     Dates: start: 19850101, end: 20030101
  2. PREMARIN [Suspect]
     Dosage: 0.625 MG DAILY; 0.625 MG DAILY, ORAL
     Route: 048
     Dates: start: 20030401, end: 20030701
  3. ATACAND [Concomitant]
  4. BEXTRA [Concomitant]
  5. CENTRUM (MULTIVITAMIN/MULTIMINERAL) [Concomitant]
  6. DARVOCET-N (DEXTROPROPOXYPHENE/PARACETAMOL) [Concomitant]
  7. EFFEXOR XR [Concomitant]

REACTIONS (1)
  - HEPATIC ENZYME INCREASED [None]
